FAERS Safety Report 7541508-X (Version None)
Quarter: 2011Q2

REPORT INFORMATION
  Report Type: 
  Country: None (occurrence: None)
  Receive Date: 20110613
  Receipt Date: 20110606
  Transmission Date: 20111010
  Serious: No
  Sender: FDA-Public Use
  Company Number: US-BIOGENIDEC-2011BI020983

PATIENT
  Sex: Male

DRUGS (2)
  1. AVONEX [Suspect]
     Indication: MULTIPLE SCLEROSIS
     Route: 030
     Dates: start: 20100601
  2. AVONEX [Suspect]
     Route: 030
     Dates: start: 20070321, end: 20091225

REACTIONS (2)
  - BALANCE DISORDER [None]
  - STRESS [None]
